FAERS Safety Report 7333928-3 (Version None)
Quarter: 2011Q1

REPORT INFORMATION
  Report Type: 
  Country: None (occurrence: None)
  Receive Date: 20110307
  Receipt Date: 20110223
  Transmission Date: 20110831
  Serious: Yes (Death, Hospitalization)
  Sender: FDA-Public Use
  Company Number: US-BIOGENIDEC-2011BI007069

PATIENT
  Age: 59 Year
  Sex: Female

DRUGS (4)
  1. AMITRIPTYLINE [Concomitant]
  2. AVONEX [Suspect]
     Indication: MULTIPLE SCLEROSIS
     Route: 030
     Dates: start: 20000428
  3. EFFEXOR [Concomitant]
  4. XANAX [Concomitant]

REACTIONS (2)
  - ANEURYSM [None]
  - FALL [None]
